FAERS Safety Report 23463844 (Version 3)
Quarter: 2024Q1

REPORT INFORMATION
  Report Type: Report from Study
  Country: CA (occurrence: CA)
  Receive Date: 20240201
  Receipt Date: 20240304
  Transmission Date: 20240409
  Serious: Yes (Hospitalization)
  Sender: FDA-Public Use
  Company Number: CA-JNJFOC-20240163608

PATIENT
  Age: 59 Year
  Sex: Male

DRUGS (2)
  1. SIMPONI [Suspect]
     Active Substance: GOLIMUMAB
     Indication: Ankylosing spondylitis
     Dosage: LAST DOSE TAKEN ON 22-JAN-2024,  ?50.00 MG / 0.50 ML
     Route: 058
     Dates: start: 20190715
  2. SIMPONI [Suspect]
     Active Substance: GOLIMUMAB
     Route: 058

REACTIONS (4)
  - Nephrolithiasis [Recovering/Resolving]
  - Oral herpes [Recovered/Resolved]
  - Device leakage [Unknown]
  - Device information output issue [Unknown]
